FAERS Safety Report 11629878 (Version 2)
Quarter: 2015Q4

REPORT INFORMATION
  Report Type: Report from Study
  Country: CH (occurrence: CH)
  Receive Date: 20151014
  Receipt Date: 20151202
  Transmission Date: 20160304
  Serious: Yes (Hospitalization)
  Sender: FDA-Public Use
  Company Number: CH-BAYER-2015-439891

PATIENT
  Age: 82 Year
  Weight: 77.2 kg

DRUGS (12)
  1. DAFALGAN [Concomitant]
     Active Substance: ACETAMINOPHEN
     Dosage: 1G
     Dates: start: 20150526
  2. VOTUM [Concomitant]
     Active Substance: OLMESARTAN MEDOXOMIL
     Dosage: 40MG
     Dates: start: 20150526
  3. BELOC ZOK [Concomitant]
     Active Substance: METOPROLOL SUCCINATE
     Dosage: 50MG
     Dates: start: 20151005
  4. STIVARGA [Suspect]
     Active Substance: REGORAFENIB
     Indication: COLORECTAL CANCER
     Dosage: 80 MG, QD
     Dates: start: 20150926, end: 20151002
  5. BELOC ZOK [Concomitant]
     Active Substance: METOPROLOL SUCCINATE
     Dosage: 25MG
     Dates: start: 20151005, end: 20151005
  6. STIVARGA [Suspect]
     Active Substance: REGORAFENIB
     Indication: COLORECTAL CANCER
     Dosage: 80 MG, QD
     Dates: start: 20150829, end: 20150904
  7. STIVARGA [Suspect]
     Active Substance: REGORAFENIB
     Indication: COLORECTAL CANCER
     Dosage: 80 MG, QD
     Dates: start: 20150912, end: 20150918
  8. XARELTO [Concomitant]
     Active Substance: RIVAROXABAN
     Dosage: 20MG
     Dates: start: 20151005
  9. STIVARGA [Suspect]
     Active Substance: REGORAFENIB
     Indication: COLORECTAL CANCER
     Dosage: 80 MG, QD
     Dates: start: 20150725, end: 20150730
  10. TORASEMID [Concomitant]
     Active Substance: TORSEMIDE
     Dosage: 10MG
     Dates: start: 20151005
  11. STIVARGA [Suspect]
     Active Substance: REGORAFENIB
     Indication: COLORECTAL CANCER
     Dosage: 120 MG, QD
     Dates: start: 20150715, end: 20150721
  12. LISINOPRIL. [Concomitant]
     Active Substance: LISINOPRIL
     Dosage: 0.5MG
     Dates: start: 20151006

REACTIONS (1)
  - Atrial fibrillation [Recovered/Resolved]

NARRATIVE: CASE EVENT DATE: 20151005
